FAERS Safety Report 24449831 (Version 1)
Quarter: 2024Q4

REPORT INFORMATION
  Report Type: Spontaneous
  Country: IT (occurrence: IT)
  Receive Date: 20241017
  Receipt Date: 20241017
  Transmission Date: 20250115
  Serious: Yes (Hospitalization, Other)
  Sender: PFIZER
  Company Number: IT-002147023-NVSC2023IT190849

PATIENT
  Age: 62 Year
  Sex: Female
  Weight: 61 kg

DRUGS (3)
  1. IRINOTECAN HYDROCHLORIDE [Suspect]
     Active Substance: IRINOTECAN HYDROCHLORIDE
     Indication: Colorectal cancer metastatic
     Dosage: 296 MG, CYCLIC (Q2W)
     Route: 042
     Dates: start: 20230517
  2. FLUOROURACIL [Suspect]
     Active Substance: FLUOROURACIL
     Indication: Colorectal cancer metastatic
     Dosage: 3951 MG, CYCLIC (Q2W)
     Route: 042
     Dates: start: 20230517
  3. FLUOROURACIL [Suspect]
     Active Substance: FLUOROURACIL
     Dosage: 658 MG, CYCLIC (Q2W)
     Route: 042
     Dates: start: 20230517

REACTIONS (1)
  - Cholangitis [Recovered/Resolved]

NARRATIVE: CASE EVENT DATE: 20230901
